FAERS Safety Report 8888822 (Version 3)
Quarter: 2013Q1

REPORT INFORMATION
  Report Type: Spontaneous
  Country: US (occurrence: US)
  Receive Date: 20121106
  Receipt Date: 20130114
  Transmission Date: 20140127
  Serious: Yes (Hospitalization, Other)
  Sender: FDA-Public Use
  Company Number: US-009507513-1210USA007776

PATIENT
  Sex: Female

DRUGS (3)
  1. RIBAVIRIN [Suspect]
     Indication: HEPATITIS C
     Dosage: UNK
     Route: 048
     Dates: start: 20121011, end: 20121223
  2. VICTRELIS [Suspect]
     Indication: HEPATITIS C
     Dosage: UNK
     Route: 048
     Dates: start: 20121108, end: 20121223
  3. PEGASYS [Suspect]
     Indication: HEPATITIS C
     Dosage: UNK
     Dates: start: 20121011, end: 20121223

REACTIONS (15)
  - Syncope [Unknown]
  - Tremor [Unknown]
  - Dizziness [Unknown]
  - Diabetes mellitus [Unknown]
  - Syncope [Unknown]
  - Loss of consciousness [Unknown]
  - Influenza like illness [Unknown]
  - Fatigue [Unknown]
  - Hyperglycaemia [Unknown]
  - Fatigue [Not Recovered/Not Resolved]
  - Dyspnoea [Not Recovered/Not Resolved]
  - Dysgeusia [Not Recovered/Not Resolved]
  - Memory impairment [Not Recovered/Not Resolved]
  - Feeling hot [Unknown]
  - Laceration [Unknown]
